FAERS Safety Report 8824242 (Version 2)
Quarter: 2013Q1

REPORT INFORMATION
  Report Type: Spontaneous
  Country: US (occurrence: US)
  Receive Date: 20121004
  Receipt Date: 20130128
  Transmission Date: 20140127
  Serious: No
  Sender: FDA-Public Use
  Company Number: US-009507513-1210USA000643

PATIENT
  Age: 72 Year
  Sex: Female
  Weight: 52.15 kg

DRUGS (8)
  1. MIRALAX [Suspect]
     Indication: CONSTIPATION
     Dosage: 1.5 TSP, QD
     Route: 048
     Dates: start: 20120813, end: 20120927
  2. MIRALAX [Suspect]
     Indication: MEDICAL OBSERVATION
  3. BISACODYL [Concomitant]
     Indication: RECTOCELE
     Dosage: UNK, UNKNOWN
  4. AMLODIPINE [Concomitant]
     Indication: HYPERTENSION
     Dosage: UNK, UNKNOWN
  5. DIOVAN [Concomitant]
     Indication: HYPERTENSION
     Dosage: UNK, UNKNOWN
  6. ASPIRIN [Concomitant]
     Indication: HYPERTENSION
     Dosage: UNK, UNKNOWN
  7. SIMVASTATIN [Concomitant]
     Indication: BLOOD CHOLESTEROL INCREASED
     Dosage: UNK, UNKNOWN
  8. LEVOXYL [Concomitant]
     Indication: HYPOTHYROIDISM
     Dosage: UNK, UNKNOWN

REACTIONS (5)
  - Muscle spasms [Recovered/Resolved]
  - Dehydration [Unknown]
  - Middle insomnia [Recovered/Resolved]
  - Incorrect drug administration duration [Unknown]
  - Incorrect dose administered [Unknown]
